FAERS Safety Report 17521737 (Version 1)
Quarter: 2020Q1

REPORT INFORMATION
  Report Type: Report from Study
  Country: FR (occurrence: FR)
  Receive Date: 20200310
  Receipt Date: 20200310
  Transmission Date: 20200409
  Serious: Yes (Other)
  Sender: FDA-Public Use
  Company Number: FR-MYLANLABS-2020M1024436

PATIENT
  Age: 49 Year
  Sex: Male
  Weight: 91 kg

DRUGS (13)
  1. NERISONE [Concomitant]
     Active Substance: DIFLUCORTOLONE VALERATE
     Dosage: 1 DOSAGE FORM
     Route: 061
     Dates: start: 201610, end: 20161005
  2. NERISONE [Concomitant]
     Active Substance: DIFLUCORTOLONE VALERATE
     Dosage: 1 DOSAGE FORM, QD
     Route: 061
     Dates: start: 20160219, end: 20160304
  3. PENTASA [Concomitant]
     Active Substance: MESALAMINE
     Dosage: 1 DOSAGE FORM
     Route: 054
     Dates: start: 199905, end: 199905
  4. HUMIRA [Suspect]
     Active Substance: ADALIMUMAB
     Indication: COLITIS ULCERATIVE
     Dosage: 40 MILLIGRAM, BIWEEKLY
     Route: 058
     Dates: start: 20151001, end: 201904
  5. PENTASA [Concomitant]
     Active Substance: MESALAMINE
     Dosage: UNK
     Route: 048
     Dates: start: 199606, end: 199802
  6. PENTASA [Concomitant]
     Active Substance: MESALAMINE
     Dosage: 2 GRAM, QD
     Route: 048
     Dates: start: 201511, end: 20170911
  7. PENTASA [Concomitant]
     Active Substance: MESALAMINE
     Indication: COLITIS ULCERATIVE
     Dosage: 4 GRAM, QD
     Route: 048
     Dates: start: 20170912
  8. NERISONE [Concomitant]
     Active Substance: DIFLUCORTOLONE VALERATE
     Dosage: 1 DOSAGE FORM, QD
     Route: 061
     Dates: start: 20160923, end: 20161002
  9. PENTASA [Concomitant]
     Active Substance: MESALAMINE
     Dosage: 2 GRAM
     Route: 048
     Dates: start: 201506, end: 2015
  10. AZATHIOPRINE. [Suspect]
     Active Substance: AZATHIOPRINE
     Indication: COLITIS ULCERATIVE
     Dosage: 225 MILLIGRAM, QD
     Route: 048
     Dates: start: 199802, end: 201904
  11. NERISONE [Concomitant]
     Active Substance: DIFLUCORTOLONE VALERATE
     Indication: SKIN LESION
     Dosage: UNK UNK, PRN
     Route: 061
     Dates: start: 20170329
  12. PENTASA [Concomitant]
     Active Substance: MESALAMINE
     Dosage: 1 DOSAGE FORM
     Route: 054
     Dates: start: 199910, end: 199910
  13. DIPROSONE                          /00008502/ [Concomitant]
     Active Substance: BETAMETHASONE SODIUM PHOSPHATE
     Indication: SKIN LESION
     Dosage: UNK UNK, PRN
     Route: 061
     Dates: start: 20161006

REACTIONS (1)
  - Squamous cell carcinoma of skin [Recovered/Resolved]

NARRATIVE: CASE EVENT DATE: 20190513
